FAERS Safety Report 14323597 (Version 4)
Quarter: 2021Q3

REPORT INFORMATION
  Report Type: Report from Study
  Country: None (occurrence: CA)
  Receive Date: 20171226
  Receipt Date: 20210717
  Transmission Date: 20211014
  Serious: Yes (Hospitalization, Other)
  Sender: FDA-Public Use
  Company Number: CA-ABBVIE-17K-028-2203520-00

PATIENT
  Age: 71 Year
  Sex: Male

DRUGS (2)
  1. HUMIRA [Suspect]
     Active Substance: ADALIMUMAB
     Indication: ANKYLOSING SPONDYLITIS
     Route: 058
     Dates: start: 20070219
  2. METFORMIN [Concomitant]
     Active Substance: METFORMIN HYDROCHLORIDE
     Indication: DIABETES MELLITUS

REACTIONS (21)
  - Cardiac disorder [Not Recovered/Not Resolved]
  - Pain [Unknown]
  - Mobility decreased [Not Recovered/Not Resolved]
  - Fall [Unknown]
  - Cardiac pacemaker insertion [Unknown]
  - Ankylosing spondylitis [Not Recovered/Not Resolved]
  - Aortic stenosis [Unknown]
  - Gastrointestinal polyp [Unknown]
  - Chest expansion decreased [Not Recovered/Not Resolved]
  - Aortic valve replacement [Unknown]
  - Renal impairment [Recovering/Resolving]
  - Atrial flutter [Not Recovered/Not Resolved]
  - Atrial fibrillation [Unknown]
  - Abdominal pain upper [Not Recovered/Not Resolved]
  - Constipation [Not Recovered/Not Resolved]
  - Arthralgia [Unknown]
  - Joint stiffness [Not Recovered/Not Resolved]
  - Polyp [Unknown]
  - Gastrointestinal haemorrhage [Unknown]
  - Renal impairment [Recovered/Resolved]
  - Post-traumatic stress disorder [Not Recovered/Not Resolved]

NARRATIVE: CASE EVENT DATE: 201710
